FAERS Safety Report 20336082 (Version 1)
Quarter: 2022Q1

REPORT INFORMATION
  Report Type: Spontaneous
  Country: US (occurrence: None)
  Receive Date: 20220113
  Receipt Date: 20220113
  Transmission Date: 20220423
  Serious: Yes (Hospitalization)
  Sender: FDA-Public Use
  Company Number: None

PATIENT
  Age: 56 Year
  Sex: Female

DRUGS (1)
  1. ZARXIO [Suspect]
     Active Substance: FILGRASTIM-SNDZ
     Dosage: OTHER STRENGTH : 480/0.8 UG/ML;?FREQUENCY : DAILY;?
     Route: 058
     Dates: start: 20220106, end: 20220110

REACTIONS (2)
  - Hypersensitivity [None]
  - Epistaxis [None]

NARRATIVE: CASE EVENT DATE: 20220110
